FAERS Safety Report 4892450-4 (Version None)
Quarter: 2006Q1

REPORT INFORMATION
  Report Type: 
  Country: None (occurrence: None)
  Receive Date: 20060125
  Receipt Date: 20060125
  Transmission Date: 20060701
  Serious: No
  Sender: FDA-Public Use
  Company Number: None

PATIENT
  Age: 53 Year
  Sex: Male
  Weight: 89.3586 kg

DRUGS (6)
  1. OXALIPLATIN [Suspect]
     Indication: OESOPHAGEAL ADENOCARCINOMA METASTATIC
     Dosage: 130MG/M2 IV Q 3 WKS
     Route: 042
     Dates: start: 20060110
  2. DOCETAXEL [Suspect]
     Indication: OESOPHAGEAL ADENOCARCINOMA METASTATIC
     Dosage: 45MG/M2 IV WKLY 2 OF 3
     Route: 042
     Dates: start: 20060110
  3. DOCETAXEL [Suspect]
     Indication: OESOPHAGEAL ADENOCARCINOMA METASTATIC
     Dosage: 45MG/M2 IV WKLY 2 OF 3
     Route: 042
     Dates: start: 20060117
  4. OXYCODONE [Concomitant]
  5. ZOFRAN [Concomitant]
  6. DIFLUCAN [Concomitant]

REACTIONS (4)
  - ANOREXIA [None]
  - FATIGUE [None]
  - NAUSEA [None]
  - NEUTROPHIL COUNT DECREASED [None]
